FAERS Safety Report 4606266-7 (Version None)
Quarter: 2005Q1

REPORT INFORMATION
  Report Type: 
  Country: None (occurrence: None)
  Receive Date: 20050303
  Receipt Date: 20041212
  Transmission Date: 20050727
  Serious: No
  Sender: FDA-Public Use
  Company Number: 200421167BWH

PATIENT
  Sex: Male

DRUGS (1)
  1. LEVITRA [Suspect]

REACTIONS (1)
  - ERECTION INCREASED [None]
